FAERS Safety Report 24181819 (Version 2)
Quarter: 2024Q3

REPORT INFORMATION
  Report Type: Spontaneous
  Country: US (occurrence: US)
  Receive Date: 20240807
  Receipt Date: 20240924
  Transmission Date: 20241017
  Serious: No
  Sender: NOVARTIS
  Company Number: US-002147023-NVSC2024US159460

PATIENT
  Sex: Female
  Weight: 98 kg

DRUGS (2)
  1. SCEMBLIX [Suspect]
     Active Substance: ASCIMINIB HYDROCHLORIDE
     Indication: Myeloid leukaemia
     Dosage: 40 MG, BID
     Route: 048
  2. SCEMBLIX [Suspect]
     Active Substance: ASCIMINIB HYDROCHLORIDE
     Dosage: 80 MG, QD
     Route: 048

REACTIONS (4)
  - Product dose omission issue [Recovering/Resolving]
  - Memory impairment [Unknown]
  - Burning sensation [Unknown]
  - Abdominal discomfort [Unknown]
